FAERS Safety Report 13775384 (Version 1)
Quarter: 2017Q3

REPORT INFORMATION
  Report Type: Spontaneous
  Country: US (occurrence: US)
  Receive Date: 20170721
  Receipt Date: 20170721
  Transmission Date: 20171127
  Serious: No
  Sender: FDA-Public Use
  Company Number: US-GLAXOSMITHKLINE-US2017109203

PATIENT
  Age: 64 Year
  Sex: Male

DRUGS (1)
  1. EQUATE NICOTINE [Suspect]
     Active Substance: NICOTINE
     Indication: SMOKING CESSATION THERAPY
     Dosage: 21 MG, UNK

REACTIONS (6)
  - Abdominal discomfort [Recovered/Resolved]
  - Viral infection [Recovered/Resolved]
  - Diarrhoea [Recovered/Resolved]
  - Drug ineffective [Unknown]
  - Decreased appetite [Recovered/Resolved]
  - Malaise [Unknown]
